FAERS Safety Report 9734559 (Version 1)
Quarter: 2013Q4

REPORT INFORMATION
  Report Type: Spontaneous
  Country: JP (occurrence: JP)
  Receive Date: 20131206
  Receipt Date: 20131206
  Transmission Date: 20140711
  Serious: Yes (Death)
  Sender: FDA-Public Use
  Company Number: JP-BRISTOL-MYERS SQUIBB COMPANY-19877851

PATIENT
  Sex: Male

DRUGS (2)
  1. ERBITUX SOLN FOR INF 5MG/ML [Suspect]
     Indication: HYPOPHARYNGEAL CANCER
     Dosage: LAST DOSE: 12NOV2013
     Route: 041
     Dates: start: 20131008
  2. SEROQUEL [Concomitant]
     Dates: start: 20131116

REACTIONS (1)
  - Cerebral infarction [Fatal]
